FAERS Safety Report 18711402 (Version 1)
Quarter: 2021Q1

REPORT INFORMATION
  Report Type: Spontaneous
  Country: US (occurrence: US)
  Receive Date: 20210106
  Receipt Date: 20210106
  Transmission Date: 20210419
  Serious: No
  Sender: FDA-Public Use
  Company Number: None

PATIENT
  Age: 74 Year
  Sex: Female
  Weight: 84.15 kg

DRUGS (11)
  1. COENZYME Q10 [Concomitant]
     Active Substance: DIETARY SUPPLEMENT\UBIDECARENONE
  2. ESCITALOPRAM [Concomitant]
     Active Substance: ESCITALOPRAM OXALATE
  3. VITAMIN D [Concomitant]
     Active Substance: VITAMIN D NOS
  4. AFINITOR [Suspect]
     Active Substance: EVEROLIMUS
     Indication: BREAST CANCER
     Route: 048
     Dates: start: 20201216
  5. CRESTOR [Concomitant]
     Active Substance: ROSUVASTATIN CALCIUM
  6. TRAZODONE [Concomitant]
     Active Substance: TRAZODONE HYDROCHLORIDE
  7. XYZAL ALLERGY 5MG [Concomitant]
  8. VITAMIN E [Concomitant]
     Active Substance: .ALPHA.-TOCOPHEROL
  9. AROMASIN [Concomitant]
     Active Substance: EXEMESTANE
  10. TRILIPIX 135MG [Concomitant]
  11. NEXIUM 20MG [Concomitant]

REACTIONS (2)
  - Stomatitis [None]
  - Nausea [None]

NARRATIVE: CASE EVENT DATE: 20210106
